FAERS Safety Report 6496871-8 (Version None)
Quarter: 2009Q4

REPORT INFORMATION
  Report Type: 
  Country: None (occurrence: None)
  Receive Date: 20091210
  Receipt Date: 20091120
  Transmission Date: 20100525
  Serious: Yes (Other)
  Sender: FDA-Public Use
  Company Number: 000520

PATIENT
  Sex: Male

DRUGS (1)
  1. PROSTAVASIN /00501501/) (PROSTAVASIN) [Suspect]
     Indication: PERIPHERAL ARTERIAL OCCLUSIVE DISEASE
     Dosage: (20 UG VIALS)

REACTIONS (2)
  - ANGINA PECTORIS [None]
  - MYOCARDIAL ISCHAEMIA [None]
